FAERS Safety Report 9695316 (Version 1)
Quarter: 2013Q4

REPORT INFORMATION
  Report Type: Spontaneous
  Country: US (occurrence: None)
  Receive Date: 20131118
  Receipt Date: 20131118
  Transmission Date: 20140711
  Serious: Yes (Death)
  Sender: FDA-Public Use
  Company Number: None

PATIENT
  Age: 72 Year
  Sex: Female
  Weight: 95.3 kg

DRUGS (11)
  1. TIGECYCLINE [Suspect]
     Indication: ENTEROBACTER TEST POSITIVE
     Route: 042
     Dates: start: 20130807, end: 20131108
  2. BUPROPION SR 100MG [Concomitant]
  3. MEGESTROL 400MG [Concomitant]
  4. DIGOXIN 0.125MG WALGREEN [Concomitant]
  5. FAMOTIDINE 20MG [Concomitant]
  6. ONDANSETRON 4MG [Concomitant]
  7. LEVOTHYROXINE 100MCG + POTASSIUM IODIDE [Concomitant]
  8. METOPROLOL 12.5MG [Concomitant]
  9. OXYCODONE IR 5MG [Concomitant]
  10. LORAZEPAM 0.5MG [Concomitant]
  11. SERTRALINE 100MG [Concomitant]

REACTIONS (4)
  - Lethargy [None]
  - Urosepsis [None]
  - Acute hepatic failure [None]
  - Renal failure acute [None]
